FAERS Safety Report 12905940 (Version 1)
Quarter: 2016Q4

REPORT INFORMATION
  Report Type: Spontaneous
  Country: GB (occurrence: GB)
  Receive Date: 20161103
  Receipt Date: 20161103
  Transmission Date: 20170207
  Serious: Yes (Hospitalization)
  Sender: FDA-Public Use
  Company Number: GB-CONCORDIA PHARMACEUTICALS INC.-GSH201610-005405

PATIENT
  Age: 76 Year
  Sex: Female

DRUGS (13)
  1. BENDROFLUMETHIAZIDE [Suspect]
     Active Substance: BENDROFLUMETHIAZIDE
     Indication: RIGHT VENTRICULAR FAILURE
     Dosage: MORNING
     Route: 048
  2. ACCRETE D3 [Concomitant]
  3. PARACETAMOL [Concomitant]
     Active Substance: ACETAMINOPHEN
     Dosage: FOUR TIMES DAILY
  4. LANSOPRAZOLE. [Concomitant]
     Active Substance: LANSOPRAZOLE
  5. WARFARIN [Concomitant]
     Active Substance: WARFARIN
     Indication: ANTICOAGULANT THERAPY
     Dosage: AS DIRECTED
  6. BUPRENORPHINE. [Concomitant]
     Active Substance: BUPRENORPHINE
     Dosage: 20 MCG/HOUR
     Route: 062
  7. PREDNISOLONE. [Concomitant]
     Active Substance: PREDNISOLONE
     Dosage: EACH MORNING, AS MAINTENANCE DOSE
  8. COLCHICINE. [Concomitant]
     Active Substance: COLCHICINE
  9. LEVOTHYROXINE. [Concomitant]
     Active Substance: LEVOTHYROXINE
  10. DIGOXIN. [Suspect]
     Active Substance: DIGOXIN
     Indication: CARDIAC FAILURE CHRONIC
     Route: 048
  11. BUPRENORPHINE. [Concomitant]
     Active Substance: BUPRENORPHINE
     Dosage: 10MCG/HOUR
     Route: 062
  12. BUMETANIDE. [Concomitant]
     Active Substance: BUMETANIDE
     Dosage: MORNING AND LUNCHTIME
  13. BISOPROLOL [Suspect]
     Active Substance: BISOPROLOL
     Indication: PROPHYLAXIS
     Route: 048

REACTIONS (5)
  - Bradycardia [Recovering/Resolving]
  - Atrial fibrillation [Recovering/Resolving]
  - Dizziness postural [Unknown]
  - Orthostatic hypotension [Unknown]
  - Acute kidney injury [Recovering/Resolving]
